FAERS Safety Report 6742674-6 (Version None)
Quarter: 2010Q2

REPORT INFORMATION
  Report Type: 
  Country: None (occurrence: None)
  Receive Date: 20100526
  Receipt Date: 20090527
  Transmission Date: 20101027
  Serious: No
  Sender: FDA-Public Use
  Company Number: US-ABBOTT-09P-163-0575988-00

PATIENT
  Sex: Male

DRUGS (2)
  1. ZEMPLAR [Suspect]
     Indication: HYPERPARATHYROIDISM
     Dates: start: 20090504, end: 20090520
  2. UNSPECIFIED MEDICATIONS [Concomitant]
     Indication: DRUG USE FOR UNKNOWN INDICATION

REACTIONS (3)
  - ASTHENIA [None]
  - DIZZINESS [None]
  - VISUAL IMPAIRMENT [None]
